FAERS Safety Report 23108022 (Version 1)
Quarter: 2023Q4

REPORT INFORMATION
  Report Type: Spontaneous
  Country: US (occurrence: US)
  Receive Date: 20231026
  Receipt Date: 20231026
  Transmission Date: 20240110
  Serious: No
  Sender: FDA-Public Use
  Company Number: US-TAKEDA-2023TUS099067

PATIENT

DRUGS (1)
  1. EXKIVITY [Suspect]
     Active Substance: MOBOCERTINIB
     Indication: Product used for unknown indication
     Dosage: 80 MILLIGRAM, QD
     Route: 065
     Dates: start: 202205

REACTIONS (1)
  - Drug intolerance [Unknown]
